FAERS Safety Report 24532823 (Version 1)
Quarter: 2024Q4

REPORT INFORMATION
  Report Type: Spontaneous
  Country: CN (occurrence: CN)
  Receive Date: 20241022
  Receipt Date: 20241022
  Transmission Date: 20250115
  Serious: Yes (Hospitalization, Other)
  Sender: SANOFI AVENTIS
  Company Number: CN-Orion Corporation ORION PHARMA-MARE2024-0481

PATIENT
  Age: 61 Year
  Sex: Female

DRUGS (5)
  1. ENOXAPARIN SODIUM [Suspect]
     Active Substance: ENOXAPARIN SODIUM
     Indication: Product used for unknown indication
     Dosage: 4000.000[IU] INTERNATION UNIT(S) QD
     Route: 058
     Dates: start: 20240819
  2. CEFTRIAXONE SODIUM [Interacting]
     Active Substance: CEFTRIAXONE SODIUM
     Indication: Infection prophylaxis
     Dosage: 2 G, QD (ROUTE OF ADMIN (FREE TEXT): INTRAVENOUS DRIP)
     Route: 041
     Dates: start: 20240803
  3. AMOXICILLIN AND CLAVULANATE POTASSIUM [Interacting]
     Active Substance: AMOXICILLIN\CLAVULANATE POTASSIUM
     Indication: Pharyngitis
     Dosage: UNK, Q12H
     Route: 048
     Dates: start: 20240801, end: 20240803
  4. WARFARIN [Interacting]
     Active Substance: WARFARIN
     Indication: Thrombosis prophylaxis
     Dosage: 1.5 MG, QD
     Route: 048
     Dates: start: 20240819
  5. WARFARIN [Interacting]
     Active Substance: WARFARIN
     Indication: Embolism
     Dosage: 3.75 MG, QD
     Route: 048
     Dates: start: 20010819, end: 20240813

REACTIONS (7)
  - Ureteric obstruction [Recovered/Resolved]
  - Urinary tract infection [Recovered/Resolved]
  - Thrombosis [Recovered/Resolved]
  - Haemorrhage urinary tract [Recovered/Resolved]
  - Haematuria [Recovered/Resolved]
  - Drug interaction [Unknown]
  - Overdose [Unknown]

NARRATIVE: CASE EVENT DATE: 20240808
